FAERS Safety Report 22380543 (Version 1)
Quarter: 2023Q2

REPORT INFORMATION
  Report Type: Spontaneous
  Country: FR (occurrence: FR)
  Receive Date: 20230529
  Receipt Date: 20230529
  Transmission Date: 20230722
  Serious: Yes (Hospitalization)
  Sender: FDA-Public Use
  Company Number: None

PATIENT
  Age: 8 Year
  Sex: Female
  Weight: 29.6 kg

DRUGS (7)
  1. CYTARABINE [Suspect]
     Active Substance: CYTARABINE
     Indication: Acute lymphocytic leukaemia
     Dosage: 2 G, Q12H (CURE J1 2G/12H SUR 3H CURE J2 : 2G/12H SUR 3H)
     Route: 042
     Dates: start: 20220729, end: 20220730
  2. CYTARABINE [Suspect]
     Active Substance: CYTARABINE
     Dosage: 30 MG, (TOTAL) (30 MG DE CYTARABINE A J5 DE LA CURE)
     Route: 037
     Dates: start: 20220803, end: 20220803
  3. PREDNISOLONE [Suspect]
     Active Substance: PREDNISOLONE
     Indication: Acute lymphocytic leukaemia
     Dosage: 10 MG, (TOTAL) (10 MG A J5 DE LA CURE)
     Route: 037
     Dates: start: 20220803, end: 20220803
  4. METHOTREXATE [Suspect]
     Active Substance: METHOTREXATE
     Indication: Acute lymphocytic leukaemia
     Dosage: 12 MG, (TOTAL) (12MG A J5 DE LA CURE)
     Route: 037
     Dates: start: 20220803, end: 20220803
  5. DEXAMETHASONE [Suspect]
     Active Substance: DEXAMETHASONE
     Indication: Acute lymphocytic leukaemia
     Dosage: 20 MG, QD (CURE DE J1 A J5 20MG/M2 SOIT 20MG/JOUR EN 2 PRISES)
     Route: 042
     Dates: start: 20220729, end: 20220803
  6. PEGASPARGASE [Suspect]
     Active Substance: PEGASPARGASE
     Indication: Acute lymphocytic leukaemia
     Dosage: 1000 ARBITRARY UNITS, (TOTAL) (J4)
     Route: 042
     Dates: start: 20220802, end: 20220802
  7. VINCRISTINE SULFATE [Suspect]
     Active Substance: VINCRISTINE SULFATE
     Indication: Acute lymphocytic leukaemia
     Dosage: 1.5 MG, (TOTAL) (CURE J1 : 1.5MG/M2 SOIT 1.5MG SUR 15 MINUTES)
     Route: 042
     Dates: start: 20220729, end: 20220729

REACTIONS (1)
  - Posterior reversible encephalopathy syndrome [Recovered/Resolved]

NARRATIVE: CASE EVENT DATE: 20220804
